FAERS Safety Report 4669525-8 (Version None)
Quarter: 2005Q2

REPORT INFORMATION
  Report Type: 
  Country: None (occurrence: None)
  Receive Date: 20050523
  Receipt Date: 20050415
  Transmission Date: 20051028
  Serious: No
  Sender: FDA-Public Use
  Company Number: PHBS2005JP05436

PATIENT
  Age: 54 Year
  Sex: Male

DRUGS (3)
  1. LUDIOMIL [Suspect]
     Indication: DEPRESSION
     Dosage: 100 MG/D
     Route: 048
     Dates: start: 20040730, end: 20050415
  2. TETRAMIDE [Concomitant]
     Route: 048
  3. DEPAS [Concomitant]
     Route: 048

REACTIONS (1)
  - MYALGIA [None]
